FAERS Safety Report 8934920 (Version 1)
Quarter: 2012Q4

REPORT INFORMATION
  Report Type: 
  Country: GB (occurrence: GB)
  Receive Date: 20121129
  Receipt Date: 20121129
  Transmission Date: 20130627
  Serious: Yes (Hospitalization, Other)
  Sender: FDA-Public Use
  Company Number: GB-US-EMD SERONO, INC.-7172952

PATIENT
  Age: 3 Year
  Sex: Male
  Weight: 20 kg

DRUGS (9)
  1. SAIZEN [Suspect]
     Indication: GROWTH HORMONE DEFICIENCY
     Route: 058
     Dates: start: 20120613, end: 20121106
  2. TOPIRAMATE [Concomitant]
     Indication: PRODUCT USED FOR UNKNOWN INDICATION
  3. CLOBAZAM [Concomitant]
     Indication: PRODUCT USED FOR UNKNOWN INDICATION
  4. ABIDEC [Concomitant]
     Indication: PRODUCT USED FOR UNKNOWN INDICATION
  5. BECLOMETHASONE [Concomitant]
     Indication: PRODUCT USED FOR UNKNOWN INDICATION
  6. HYOSCINE [Concomitant]
     Indication: PRODUCT USED FOR UNKNOWN INDICATION
  7. SALBUTAMOL [Concomitant]
     Indication: PRODUCT USED FOR UNKNOWN INDICATION
  8. MIDAZOLAM [Concomitant]
     Indication: AGITATION
     Route: 002
  9. MIDAZOLAM [Concomitant]
     Indication: DYSPNOEA
     Route: 002

REACTIONS (3)
  - Respiratory distress [Unknown]
  - Urinary tract infection [Unknown]
  - General physical health deterioration [Unknown]
